FAERS Safety Report 5673299-1 (Version None)
Quarter: 2008Q1

REPORT INFORMATION
  Report Type: 
  Country: None (occurrence: None)
  Receive Date: 20080319
  Receipt Date: 20080306
  Transmission Date: 20080703
  Serious: Yes (Other)
  Sender: FDA-Public Use
  Company Number: US-ELI_LILLY_AND_COMPANY-US200803001446

PATIENT
  Sex: Female

DRUGS (2)
  1. FORTEO [Suspect]
     Dosage: UNK, UNK
     Dates: start: 20060501, end: 20080101
  2. FORTEO [Suspect]
     Dates: start: 20080101

REACTIONS (2)
  - MYOCARDIAL INFARCTION [None]
  - PAIN IN EXTREMITY [None]
